FAERS Safety Report 4519728-8 (Version None)
Quarter: 2004Q4

REPORT INFORMATION
  Report Type: 
  Country: None (occurrence: None)
  Receive Date: 20041207
  Receipt Date: 20041125
  Transmission Date: 20050328
  Serious: Yes (Other)
  Sender: FDA-Public Use
  Company Number: JP-JNJFOC-20040403229

PATIENT
  Sex: Male
  Weight: 42.9 kg

DRUGS (19)
  1. REMICADE [Suspect]
     Route: 041
  2. REMICADE [Suspect]
     Route: 041
  3. REMICADE [Suspect]
     Route: 041
  4. REMICADE [Suspect]
     Indication: RHEUMATOID ARTHRITIS
     Route: 041
  5. METHOTREXATE [Concomitant]
     Route: 049
  6. METHOTREXATE [Concomitant]
     Route: 049
  7. METHOTREXATE [Concomitant]
     Route: 049
  8. METHOTREXATE [Concomitant]
     Route: 049
  9. METHOTREXATE [Concomitant]
     Route: 049
  10. METHOTREXATE [Concomitant]
     Route: 049
  11. METHOTREXATE [Concomitant]
     Route: 049
  12. METHOTREXATE [Concomitant]
     Route: 049
  13. METHOTREXATE [Concomitant]
     Route: 049
  14. METHOTREXATE [Concomitant]
     Indication: RHEUMATOID ARTHRITIS
     Route: 049
  15. INH [Concomitant]
     Indication: TUBERCULOSIS PROPHYLAXIS
     Route: 065
     Dates: start: 20040330
  16. PREDONINE [Concomitant]
     Indication: RHEUMATOID ARTHRITIS
     Dosage: HALF A 5MG TABLET A DAY
     Route: 049
  17. CLINORIL [Concomitant]
     Indication: RHEUMATOID ARTHRITIS
     Dosage: 2 100MG TABLETS A DAY
     Route: 049
  18. FOLIAMIN [Concomitant]
     Route: 049
  19. GASTER D [Concomitant]
     Dosage: ONE TABLET A DAY
     Route: 049
     Dates: end: 20040415

REACTIONS (4)
  - FACE OEDEMA [None]
  - PYREXIA [None]
  - URTICARIA [None]
  - VOMITING [None]
